FAERS Safety Report 9559648 (Version 1)
Quarter: 2013Q2

REPORT INFORMATION
  Report Type: Spontaneous
  Country: US (occurrence: None)
  Receive Date: 20130617
  Receipt Date: 20130617
  Transmission Date: 20140414
  Serious: Yes (Other)
  Sender: FDA-Public Use
  Company Number: EUS-2013-00203

PATIENT
  Sex: 0

DRUGS (1)
  1. ASPARAGINASE (UNSPECIFIED) (ASPARAGINASE) [Suspect]
     Indication: ACUTE LYMPHOCYTIC LEUKAEMIA
     Dosage: FOR POG PROTOCOL: 6000 UNITS/M2 ON DAYS 2,5,8,12,15,19 OR FOR CCG PROTOCOL: 6000 UNITS/M2 ON MONDAYS, WEDNESDAYS, AND FRIDAYS FOR 3- WEEKS DURING INDUCTION

REACTIONS (2)
  - Embolism [None]
  - Embolism [None]
